FAERS Safety Report 7867138-8 (Version None)
Quarter: 2011Q4

REPORT INFORMATION
  Report Type: 
  Country: None (occurrence: None)
  Receive Date: 20111028
  Receipt Date: 20111021
  Transmission Date: 20120403
  Serious: Yes (Hospitalization)
  Sender: FDA-Public Use
  Company Number: US-BRISTOL-MYERS SQUIBB COMPANY-14527709

PATIENT
  Age: 63 Year
  Sex: Male
  Weight: 53 kg

DRUGS (4)
  1. OXYCODONE HCL [Concomitant]
     Indication: PAIN
  2. CISPLATIN [Suspect]
     Indication: HEAD AND NECK CANCER
     Dosage: TAKEN 100MG/M2 ON DAY 1 AND 22. 2ND COURSE: 23FEB09 - 176 MG LAST DOSE 23FEB2011.
     Route: 042
     Dates: start: 20090202
  3. MS CONTIN [Concomitant]
     Route: 048
  4. CISPLATIN [Suspect]
     Indication: LARYNGEAL CANCER
     Dosage: TAKEN 100MG/M2 ON DAY 1 AND 22. 2ND COURSE: 23FEB09 - 176 MG LAST DOSE 23FEB2011.
     Route: 042
     Dates: start: 20090202

REACTIONS (4)
  - DYSPHAGIA [None]
  - DEHYDRATION [None]
  - PAIN [None]
  - CONFUSIONAL STATE [None]
